FAERS Safety Report 6573640-1 (Version None)
Quarter: 2010Q1

REPORT INFORMATION
  Report Type: 
  Country: None (occurrence: None)
  Receive Date: 20100208
  Receipt Date: 20100201
  Transmission Date: 20100710
  Serious: Yes (Other)
  Sender: FDA-Public Use
  Company Number: FR-ROCHE-683014

PATIENT
  Sex: Female

DRUGS (3)
  1. AVASTIN [Suspect]
     Route: 042
     Dates: start: 20070801
  2. PAMIDRONATE DISODIUM [Suspect]
     Dosage: DRUG: SODIUM PAMIDRONATE
     Route: 042
     Dates: start: 20070801, end: 20090801
  3. PAXENE [Suspect]
     Route: 065
     Dates: start: 20070801

REACTIONS (1)
  - OSTEONECROSIS [None]
